FAERS Safety Report 23013797 (Version 1)
Quarter: 2023Q4

REPORT INFORMATION
  Report Type: Spontaneous
  Country: US (occurrence: US)
  Receive Date: 20231001
  Receipt Date: 20231001
  Transmission Date: 20240109
  Serious: Yes (Other)
  Sender: FDA-Public Use
  Company Number: US-JNJFOC-20230960091

PATIENT
  Sex: Male

DRUGS (1)
  1. XARELTO [Suspect]
     Active Substance: RIVAROXABAN
     Indication: Product used for unknown indication
     Route: 048

REACTIONS (6)
  - Cardiac disorder [Unknown]
  - Muscle spasms [Unknown]
  - Cold sweat [Unknown]
  - Fatigue [Unknown]
  - Dehydration [Unknown]
  - Product dose omission issue [Unknown]
